FAERS Safety Report 5957161-2 (Version None)
Quarter: 2008Q4

REPORT INFORMATION
  Report Type: 
  Country: None (occurrence: None)
  Receive Date: 20081118
  Receipt Date: 20081106
  Transmission Date: 20090506
  Serious: Yes (Death)
  Sender: FDA-Public Use
  Company Number: JP-PFIZER INC-2008095078

PATIENT
  Sex: Male
  Weight: 62 kg

DRUGS (6)
  1. SUTENT [Suspect]
     Indication: RENAL CELL CARCINOMA
     Route: 048
     Dates: start: 20080609
  2. NORVASC [Concomitant]
     Route: 048
  3. BLOPRESS [Concomitant]
     Route: 048
  4. CELESTONE [Concomitant]
     Route: 048
     Dates: start: 20080605
  5. SELENICA-R [Concomitant]
     Route: 048
  6. LANSOPRAZOLE [Concomitant]
     Route: 048
     Dates: start: 20080605

REACTIONS (1)
  - DEATH [None]
